FAERS Safety Report 10559659 (Version 2)
Quarter: 2014Q4

REPORT INFORMATION
  Report Type: Spontaneous
  Country: US (occurrence: US)
  Receive Date: 20141103
  Receipt Date: 20141129
  Transmission Date: 20150529
  Serious: No
  Sender: FDA-Public Use
  Company Number: US-009507513-1410USA011873

PATIENT
  Sex: Female

DRUGS (1)
  1. NEXPLANON [Suspect]
     Active Substance: ETONOGESTREL
     Indication: CONTRACEPTION
     Dosage: 68 MG, UNK
     Route: 059
     Dates: start: 20140717

REACTIONS (6)
  - Implant site scar [Unknown]
  - Overdose [Unknown]
  - Medical device complication [Not Recovered/Not Resolved]
  - Cellulitis [Unknown]
  - Abscess [Recovered/Resolved]
  - Treatment noncompliance [Unknown]

NARRATIVE: CASE EVENT DATE: 2014
